FAERS Safety Report 5210350-7 (Version None)
Quarter: 2007Q1

REPORT INFORMATION
  Report Type: 
  Country: None (occurrence: None)
  Receive Date: 20070117
  Receipt Date: 20070109
  Transmission Date: 20070707
  Serious: Yes (Other)
  Sender: FDA-Public Use
  Company Number: PHEH2007US00749

PATIENT
  Age: 62 Year
  Sex: Female
  Weight: 109.75 kg

DRUGS (5)
  1. ZELNORM [Suspect]
     Indication: ABDOMINAL DISTENSION
     Dosage: 6 MG, BID
     Route: 048
     Dates: start: 20050101
  2. PREVACID [Concomitant]
     Indication: DYSPEPSIA
     Dates: start: 20061201
  3. LISINOPRIL [Concomitant]
     Indication: HYPERTENSION
     Dates: start: 20060101
  4. BUMETANIDE [Concomitant]
     Indication: OEDEMA PERIPHERAL
     Dates: start: 20060101
  5. AMBIEN [Concomitant]
     Indication: SLEEP DISORDER
     Dates: start: 20040101

REACTIONS (3)
  - DIABETES MELLITUS NON-INSULIN-DEPENDENT [None]
  - FAECES DISCOLOURED [None]
  - HEPATIC STEATOSIS [None]
